FAERS Safety Report 10477612 (Version 1)
Quarter: 2014Q3

REPORT INFORMATION
  Report Type: Spontaneous
  Country: BE (occurrence: None)
  Receive Date: 20140924
  Receipt Date: 20140924
  Transmission Date: 20150326
  Serious: Yes (Death, Hospitalization)
  Sender: FDA-Public Use
  Company Number: 2014HINLIT0877

PATIENT
  Age: 37 Year
  Sex: Male

DRUGS (8)
  1. TENOFOVIR (TENOFOVIR) UNKNOWN [Suspect]
     Active Substance: TENOFOVIR
     Indication: HIV INFECTION
  2. LOPINAVIR+ RITONAVIR [Suspect]
     Active Substance: LOPINAVIR\RITONAVIR
     Indication: HIV INFECTION
  3. DIPHANTOIN [Concomitant]
  4. MIDAZOLAM [Concomitant]
     Active Substance: MIDAZOLAM\MIDAZOLAM HYDROCHLORIDE
  5. VALPROIC ACID. [Concomitant]
     Active Substance: VALPROIC ACID
  6. CLONAZEPAM. [Concomitant]
     Active Substance: CLONAZEPAM
  7. LAMIVUDINE (LAMIVUDINE) UNKNOWN [Suspect]
     Active Substance: LAMIVUDINE
     Indication: HIV INFECTION
  8. AMPHOTERICIN B (AMPHOTERICIN B) [Suspect]
     Active Substance: AMPHOTERICIN B
     Indication: PRODUCT USED FOR UNKNOWN INDICATION

REACTIONS (8)
  - Immune reconstitution inflammatory syndrome [None]
  - Refusal of treatment by patient [None]
  - Status epilepticus [None]
  - Cryptococcosis [None]
  - Disseminated cryptococcosis [None]
  - Mycobacterium avium complex infection [None]
  - Epilepsy [None]
  - Brain oedema [None]
